FAERS Safety Report 17839662 (Version 1)
Quarter: 2020Q2

REPORT INFORMATION
  Report Type: Other
  Country: CA (occurrence: CA)
  Receive Date: 20200529
  Receipt Date: 20200529
  Transmission Date: 20200714
  Serious: Yes (Other)
  Sender: FDA-Public Use
  Company Number: CA-APOTEX-2020AP011238

PATIENT
  Age: 80 Year
  Sex: Female

DRUGS (1)
  1. APO-AMOXI CLAV 875/125 [Suspect]
     Active Substance: AMOXICILLIN\CLAVULANATE POTASSIUM
     Indication: CYSTITIS
     Dosage: 1 DF, BID
     Route: 048

REACTIONS (1)
  - Hallucination [Recovered/Resolved]
